FAERS Safety Report 15152328 (Version 2)
Quarter: 2018Q3

REPORT INFORMATION
  Report Type: Spontaneous
  Country: US (occurrence: US)
  Receive Date: 20180717
  Receipt Date: 20180814
  Transmission Date: 20181010
  Serious: Yes (Death, Other)
  Sender: FDA-Public Use
  Company Number: US-BIOCOMPATIBLES UK LTD-2018BTG01722

PATIENT
  Age: 33 Year
  Sex: Female

DRUGS (1)
  1. DIGIFAB [Suspect]
     Active Substance: OVINE DIGOXIN IMMUNE FAB
     Indication: TOXICITY TO VARIOUS AGENTS
     Dosage: 10 VIALS, 400 MG

REACTIONS (3)
  - Atrioventricular block [Fatal]
  - Drug ineffective [Unknown]
  - Off label use [Unknown]
